FAERS Safety Report 8844043 (Version 3)
Quarter: 2013Q1

REPORT INFORMATION
  Report Type: Spontaneous
  Country: US (occurrence: US)
  Receive Date: 20121016
  Receipt Date: 20130201
  Transmission Date: 20140127
  Serious: Yes (Hospitalization)
  Sender: FDA-Public Use
  Company Number: US-PFIZER INC-2012251679

PATIENT
  Age: 56 Year
  Sex: Female
  Weight: 81.36 kg

DRUGS (2)
  1. REVATIO [Suspect]
     Dosage: UNK
  2. REMODULIN [Suspect]
     Indication: COR PULMONALE CHRONIC
     Dosage: 45 NG/KG/MIN (DAILY DOSE OF 64.8 UG/KG)
     Route: 042
     Dates: start: 20120218

REACTIONS (1)
  - Ascites [Not Recovered/Not Resolved]
